FAERS Safety Report 8576604-1 (Version None)
Quarter: 2012Q3

REPORT INFORMATION
  Report Type: 
  Country: None (occurrence: None)
  Receive Date: 20120807
  Receipt Date: 20120112
  Transmission Date: 20120928
  Serious: Yes (Death, Other)
  Sender: FDA-Public Use
  Company Number: US-ROCHE-1094870

PATIENT
  Sex: Female

DRUGS (4)
  1. XOLAIR [Suspect]
     Indication: ASTHMA
  2. XOLAIR [Suspect]
     Indication: ALLERGIC BRONCHITIS
  3. XOLAIR [Suspect]
  4. XOLAIR [Suspect]

REACTIONS (2)
  - MALAISE [None]
  - DEATH [None]
